FAERS Safety Report 12615503 (Version 2)
Quarter: 2016Q3

REPORT INFORMATION
  Report Type: Report from Study
  Country: BR (occurrence: BR)
  Receive Date: 20160802
  Receipt Date: 20160823
  Transmission Date: 20161109
  Serious: Yes (Other)
  Sender: FDA-Public Use
  Company Number: PHHY2016BR105307

PATIENT
  Sex: Male
  Weight: 43.5 kg

DRUGS (1)
  1. EXJADE [Suspect]
     Active Substance: DEFERASIROX
     Indication: SICKLE CELL ANAEMIA
     Dosage: 3 DF (35 MG/KG), QD
     Route: 048
     Dates: start: 2013, end: 201602

REACTIONS (4)
  - Ear pain [Recovering/Resolving]
  - Osteonecrosis [Unknown]
  - Gait disturbance [Unknown]
  - Hypoacusis [Recovering/Resolving]
